FAERS Safety Report 7171478-8 (Version None)
Quarter: 2010Q4

REPORT INFORMATION
  Report Type: 
  Country: None (occurrence: None)
  Receive Date: 20101217
  Receipt Date: 20101118
  Transmission Date: 20110411
  Serious: Yes (Death, Life-Threatening, Other)
  Sender: FDA-Public Use
  Company Number: US-BAXTER-2010BH003459

PATIENT
  Age: 58 Year
  Sex: Female
  Weight: 138 kg

DRUGS (75)
  1. HEPARIN SODIUM INJECTION [Suspect]
     Indication: DEEP VEIN THROMBOSIS
     Route: 042
     Dates: start: 20071111, end: 20071113
  2. HEPARIN SODIUM INJECTION [Suspect]
     Indication: INTRAVENOUS CATHETER MANAGEMENT
     Route: 042
     Dates: start: 20071111, end: 20071113
  3. HEPARIN SODIUM INJECTION [Suspect]
     Indication: CEREBROVASCULAR ACCIDENT
     Route: 042
     Dates: start: 20071111, end: 20071113
  4. HEPARIN SODIUM INJECTION [Suspect]
     Route: 042
     Dates: start: 20071101, end: 20071201
  5. HEPARIN SODIUM INJECTION [Suspect]
     Route: 042
     Dates: start: 20071101, end: 20071201
  6. HEPARIN SODIUM INJECTION [Suspect]
     Route: 042
     Dates: start: 20071101, end: 20071201
  7. HEPARIN SODIUM INJECTION [Suspect]
     Route: 065
     Dates: start: 20071101, end: 20080301
  8. HEPARIN SODIUM INJECTION [Suspect]
     Route: 065
     Dates: start: 20071101, end: 20080301
  9. HEPARIN SODIUM INJECTION [Suspect]
     Route: 065
     Dates: start: 20071101, end: 20080301
  10. HEPARIN SODIUM INJECTION [Suspect]
     Route: 042
     Dates: start: 20071214, end: 20071214
  11. HEPARIN SODIUM INJECTION [Suspect]
     Route: 042
     Dates: start: 20071214, end: 20071214
  12. HEPARIN SODIUM INJECTION [Suspect]
     Route: 042
     Dates: start: 20071214, end: 20071214
  13. HEPARIN SODIUM INJECTION [Suspect]
     Route: 058
     Dates: start: 20071209, end: 20071210
  14. HEPARIN SODIUM INJECTION [Suspect]
     Route: 058
     Dates: start: 20071209, end: 20071210
  15. HEPARIN SODIUM INJECTION [Suspect]
     Route: 058
     Dates: start: 20071209, end: 20071210
  16. HEPARIN SODIUM INJECTION [Suspect]
     Route: 058
     Dates: start: 20071227, end: 20071228
  17. HEPARIN SODIUM INJECTION [Suspect]
     Route: 058
     Dates: start: 20071227, end: 20071228
  18. HEPARIN SODIUM INJECTION [Suspect]
     Route: 058
     Dates: start: 20071227, end: 20071228
  19. HEPARIN SODIUM INJECTION [Suspect]
     Route: 042
     Dates: start: 20071101, end: 20071201
  20. HEPARIN SODIUM INJECTION [Suspect]
     Route: 042
     Dates: start: 20071101, end: 20071201
  21. HEPARIN SODIUM INJECTION [Suspect]
     Route: 042
     Dates: start: 20071101, end: 20071201
  22. HEPARIN SODIUM INJECTION [Suspect]
     Route: 042
     Dates: start: 20071228, end: 20071228
  23. HEPARIN SODIUM INJECTION [Suspect]
     Route: 042
     Dates: start: 20071228, end: 20071228
  24. HEPARIN SODIUM INJECTION [Suspect]
     Route: 042
     Dates: start: 20071228, end: 20071228
  25. HEPARIN SODIUM INJECTION [Suspect]
     Route: 042
     Dates: start: 20071101, end: 20071201
  26. HEPARIN SODIUM INJECTION [Suspect]
     Route: 042
     Dates: start: 20071101, end: 20071201
  27. HEPARIN SODIUM INJECTION [Suspect]
     Route: 042
     Dates: start: 20071101, end: 20071201
  28. HEPARIN SODIUM 5,000 UNITS IN DEXTROSE 5% [Suspect]
     Indication: DEEP VEIN THROMBOSIS
     Route: 042
     Dates: start: 20071210, end: 20071211
  29. HEPARIN SODIUM 5,000 UNITS IN DEXTROSE 5% [Suspect]
     Indication: CEREBROVASCULAR ACCIDENT
     Route: 042
     Dates: start: 20071210, end: 20071211
  30. HEPARIN SODIUM 5,000 UNITS IN DEXTROSE 5% [Suspect]
     Route: 042
     Dates: start: 20071214, end: 20071227
  31. HEPARIN SODIUM 5,000 UNITS IN DEXTROSE 5% [Suspect]
     Route: 042
     Dates: start: 20071214, end: 20071227
  32. HEPARIN SODIUM 5,000 UNITS IN DEXTROSE 5% [Suspect]
     Route: 042
     Dates: start: 20071228, end: 20080103
  33. HEPARIN SODIUM 5,000 UNITS IN DEXTROSE 5% [Suspect]
     Route: 042
     Dates: start: 20071228, end: 20080103
  34. HEPARIN SODIUM 5,000 UNITS IN DEXTROSE 5% [Suspect]
     Route: 042
     Dates: start: 20080221
  35. HEPARIN SODIUM 5,000 UNITS IN DEXTROSE 5% [Suspect]
     Route: 042
     Dates: start: 20080221
  36. METFORMIN [Concomitant]
     Indication: PRODUCT USED FOR UNKNOWN INDICATION
     Route: 065
  37. PROPOFOL [Concomitant]
     Indication: PRODUCT USED FOR UNKNOWN INDICATION
     Route: 041
  38. LASIX [Concomitant]
     Indication: PRODUCT USED FOR UNKNOWN INDICATION
     Route: 041
  39. PROTONIX [Concomitant]
     Indication: PRODUCT USED FOR UNKNOWN INDICATION
     Route: 042
  40. LINEZOLID [Concomitant]
     Indication: PRODUCT USED FOR UNKNOWN INDICATION
     Route: 065
  41. ANCEF [Concomitant]
     Indication: PRODUCT USED FOR UNKNOWN INDICATION
     Route: 065
  42. EPOGEN [Concomitant]
     Indication: PRODUCT USED FOR UNKNOWN INDICATION
     Route: 058
  43. HYDRALAZINE [Concomitant]
     Indication: PRODUCT USED FOR UNKNOWN INDICATION
     Route: 065
  44. ISORDIL [Concomitant]
     Indication: PRODUCT USED FOR UNKNOWN INDICATION
     Route: 065
  45. COREG [Concomitant]
     Indication: PRODUCT USED FOR UNKNOWN INDICATION
     Route: 065
  46. AMIODARONE [Concomitant]
     Indication: PRODUCT USED FOR UNKNOWN INDICATION
     Route: 065
  47. ASPIRIN [Concomitant]
     Indication: PRODUCT USED FOR UNKNOWN INDICATION
     Route: 065
  48. DIGOXIN [Concomitant]
     Indication: PRODUCT USED FOR UNKNOWN INDICATION
     Route: 048
  49. WARFARIN SODIUM [Concomitant]
     Indication: CEREBROVASCULAR ACCIDENT
     Route: 048
     Dates: start: 20071101
  50. LANTUS [Concomitant]
     Indication: DIABETES MELLITUS
     Route: 058
     Dates: start: 20071101
  51. ATIVAN [Concomitant]
     Indication: ANXIETY
     Route: 048
     Dates: start: 20071101
  52. PHENERGAN [Concomitant]
     Indication: NAUSEA
     Route: 042
     Dates: start: 20071101
  53. NITROSTAT [Concomitant]
     Indication: CHEST PAIN
     Route: 060
  54. AMBIEN [Concomitant]
     Indication: SLEEP DISORDER
     Route: 048
  55. MILK OF MAGNESIA [Concomitant]
     Indication: CONSTIPATION
     Route: 048
  56. HYDROCHLOROTHIAZIDE [Concomitant]
     Indication: PRODUCT USED FOR UNKNOWN INDICATION
     Route: 048
  57. TOPAMAX [Concomitant]
     Indication: PRODUCT USED FOR UNKNOWN INDICATION
     Route: 048
  58. ALBUTEROL [Concomitant]
     Indication: PRODUCT USED FOR UNKNOWN INDICATION
     Route: 055
  59. CARDIZEM [Concomitant]
     Indication: ATRIAL FIBRILLATION
     Route: 042
     Dates: start: 20071104
  60. LISINOPRIL [Concomitant]
     Indication: PRODUCT USED FOR UNKNOWN INDICATION
     Route: 048
  61. TOPROL-XL [Concomitant]
     Indication: PRODUCT USED FOR UNKNOWN INDICATION
     Route: 048
  62. ADALAT [Concomitant]
     Indication: PRODUCT USED FOR UNKNOWN INDICATION
     Route: 065
  63. PRILOSEC [Concomitant]
     Indication: PRODUCT USED FOR UNKNOWN INDICATION
     Route: 048
  64. SIMVASTATIN [Concomitant]
     Indication: PRODUCT USED FOR UNKNOWN INDICATION
     Route: 048
  65. LABETALOL HCL [Concomitant]
     Indication: PRODUCT USED FOR UNKNOWN INDICATION
     Route: 065
  66. FEOSOL [Concomitant]
     Indication: PRODUCT USED FOR UNKNOWN INDICATION
     Route: 065
  67. LOPRESSOR [Concomitant]
     Indication: ATRIAL FIBRILLATION
     Route: 042
  68. POTASSIUM PHOSPHATES [Concomitant]
     Indication: PRODUCT USED FOR UNKNOWN INDICATION
     Route: 048
  69. SYNERCID [Concomitant]
     Indication: ENTEROCOCCAL INFECTION
     Route: 065
     Dates: start: 20080104, end: 20080106
  70. NEO-SYNEPHRINOL [Concomitant]
     Indication: PRODUCT USED FOR UNKNOWN INDICATION
     Route: 065
  71. AMARYL [Concomitant]
     Indication: PRODUCT USED FOR UNKNOWN INDICATION
     Route: 048
     Dates: start: 20071101
  72. TRAZODONE HCL [Concomitant]
     Indication: INSOMNIA
     Route: 048
  73. ULTRAM [Concomitant]
     Indication: PAIN
     Route: 048
  74. NOVOLIN 70/30 [Concomitant]
     Indication: PRODUCT USED FOR UNKNOWN INDICATION
     Route: 058
  75. HUMIBID LA [Concomitant]
     Indication: PRODUCT USED FOR UNKNOWN INDICATION
     Route: 048
     Dates: start: 20071118, end: 20071120

REACTIONS (37)
  - ABASIA [None]
  - ABDOMINAL PAIN UPPER [None]
  - ACUTE PULMONARY OEDEMA [None]
  - ACUTE RESPIRATORY FAILURE [None]
  - ANAEMIA [None]
  - ASTHENIA [None]
  - ATRIAL FIBRILLATION [None]
  - BACTERAEMIA [None]
  - BLOOD PRESSURE DECREASED [None]
  - CARDIAC ARREST [None]
  - CARDIAC FAILURE CONGESTIVE [None]
  - CARDIAC VALVE DISEASE [None]
  - CARDIOGENIC SHOCK [None]
  - CORONARY ARTERY OCCLUSION [None]
  - DEEP VEIN THROMBOSIS [None]
  - DISSEMINATED INTRAVASCULAR COAGULATION [None]
  - EMBOLIC STROKE [None]
  - ENDOCARDITIS [None]
  - ERYTHEMA [None]
  - HYPOPHAGIA [None]
  - MENTAL STATUS CHANGES [None]
  - MYOCARDIAL INFARCTION [None]
  - NAUSEA [None]
  - ORGAN FAILURE [None]
  - PHARYNGEAL OEDEMA [None]
  - PNEUMONIA [None]
  - PYREXIA [None]
  - RENAL FAILURE ACUTE [None]
  - SEPSIS [None]
  - SEPTIC SHOCK [None]
  - SPEECH DISORDER [None]
  - THROMBOCYTOPENIA [None]
  - URINARY TRACT INFECTION [None]
  - URTICARIA [None]
  - VENTRICULAR FIBRILLATION [None]
  - VISUAL IMPAIRMENT [None]
  - VOMITING [None]
